FAERS Safety Report 5099764-6 (Version None)
Quarter: 2006Q3

REPORT INFORMATION
  Report Type: 
  Country: None (occurrence: None)
  Receive Date: 20060908
  Receipt Date: 20060829
  Transmission Date: 20061208
  Serious: Yes (Other)
  Sender: FDA-Public Use
  Company Number: 2006UW16955

PATIENT
  Age: 89 Year
  Sex: Female

DRUGS (11)
  1. SEROQUEL [Suspect]
     Indication: DELUSION
     Route: 048
     Dates: start: 20060701
  2. SEROQUEL [Suspect]
     Indication: HALLUCINATION
     Route: 048
     Dates: start: 20060701
  3. SEROQUEL [Suspect]
     Indication: PARANOIA
     Route: 048
     Dates: start: 20060701
  4. LAMICTAL [Suspect]
     Indication: CONVULSION
     Route: 048
     Dates: start: 20060401
  5. SOTALOL HYDROCHLORIDE [Concomitant]
  6. METOPROLOL TARTRATE [Concomitant]
  7. CALCIUM SALT [Concomitant]
  8. CRANBERRY TABLETS [Concomitant]
  9. RISEDRONIC ACID [Concomitant]
  10. AMOXICILLIN TRIHYDRATE [Concomitant]
     Dates: start: 20060802, end: 20060812
  11. DILANTIN [Concomitant]
     Indication: CONVULSION

REACTIONS (6)
  - COORDINATION ABNORMAL [None]
  - DELUSION [None]
  - FALL [None]
  - HALLUCINATION [None]
  - MOBILITY DECREASED [None]
  - THINKING ABNORMAL [None]
